FAERS Safety Report 11474235 (Version 1)
Quarter: 2015Q3

REPORT INFORMATION
  Report Type: Spontaneous
  Country: US (occurrence: None)
  Receive Date: 20150908
  Receipt Date: 20150908
  Transmission Date: 20151125
  Serious: No
  Sender: FDA-Public Use
  Company Number: None

PATIENT
  Age: 16 Year
  Sex: Male
  Weight: 70.31 kg

DRUGS (1)
  1. CETIRIZINE [Suspect]
     Active Substance: CETIRIZINE HYDROCHLORIDE
     Dosage: TAKEN BY MOUTH
     Route: 048

REACTIONS (5)
  - Foreign body sensation in eyes [None]
  - Eye pruritus [None]
  - Lacrimation increased [None]
  - Drug dependence [None]
  - Nasal congestion [None]
